FAERS Safety Report 6689041-1 (Version None)
Quarter: 2010Q2

REPORT INFORMATION
  Report Type: 
  Country: None (occurrence: None)
  Receive Date: 20100420
  Receipt Date: 20100408
  Transmission Date: 20101027
  Serious: Yes (Death, Hospitalization, Other)
  Sender: FDA-Public Use
  Company Number: DE-PFIZER INC-2010034003

PATIENT
  Age: 54 Year
  Sex: Male
  Weight: 61 kg

DRUGS (6)
  1. BLINDED *NO SUBJECT DRUG [Suspect]
     Indication: ASPERGILLOSIS
     Dosage: BLINDED THERAPY
     Route: 042
     Dates: start: 20100303, end: 20100316
  2. BLINDED *PLACEBO [Suspect]
     Indication: ASPERGILLOSIS
     Dosage: BLINDED THERAPY
     Route: 042
     Dates: start: 20100303, end: 20100316
  3. BLINDED ANIDULAFUNGIN [Suspect]
     Indication: ASPERGILLOSIS
     Dosage: BLINDED THERAPY
     Route: 042
     Dates: start: 20100303, end: 20100316
  4. VORICONAZOLE [Suspect]
     Indication: ASPERGILLOSIS
     Dosage: 360 MG, 2X/DAY
     Route: 042
     Dates: start: 20100303, end: 20100303
  5. VORICONAZOLE [Suspect]
     Dosage: 240 MG, 2X/DAY
     Route: 042
     Dates: start: 20100304, end: 20100314
  6. VORICONAZOLE [Suspect]
     Dosage: 200 MG, 2X/DAY
     Route: 042
     Dates: start: 20100315, end: 20100315

REACTIONS (2)
  - SEPSIS [None]
  - TRANSAMINASES INCREASED [None]
